FAERS Safety Report 6903171-8 (Version None)
Quarter: 2010Q3

REPORT INFORMATION
  Report Type: 
  Country: None (occurrence: None)
  Receive Date: 20100803
  Receipt Date: 20080620
  Transmission Date: 20110219
  Serious: No
  Sender: FDA-Public Use
  Company Number: US-PFIZER INC-2008052535

PATIENT
  Sex: Female
  Weight: 61.363 kg

DRUGS (12)
  1. LYRICA [Suspect]
     Indication: NEUROPATHY PERIPHERAL
     Route: 048
     Dates: start: 20070101
  2. LYRICA [Suspect]
     Indication: FIBROMYALGIA
  3. ATENOLOL [Concomitant]
  4. TRAMADOL HYDROCHLORIDE [Concomitant]
  5. PREMARIN [Concomitant]
  6. TRIAMTERENE AND HYDROCHLOROTHIAZIDE [Concomitant]
  7. CLONAZEPAM [Concomitant]
  8. TYLENOL [Concomitant]
  9. OSTEO BI-FLEX [Concomitant]
  10. VITAMIN B-COMPLEX WITH VITAMIN C [Concomitant]
  11. CALCIUM WITH VITAMIN D [Concomitant]
  12. IBUPROFEN [Concomitant]

REACTIONS (9)
  - AMNESIA [None]
  - DIZZINESS [None]
  - MUSCLE TWITCHING [None]
  - NAUSEA [None]
  - OTITIS MEDIA [None]
  - SOMNOLENCE [None]
  - VERTIGO [None]
  - VISION BLURRED [None]
  - VOMITING [None]
